FAERS Safety Report 5928778-6 (Version None)
Quarter: 2008Q4

REPORT INFORMATION
  Report Type: 
  Country: None (occurrence: None)
  Receive Date: 20081023
  Receipt Date: 20081023
  Transmission Date: 20090506
  Serious: Yes (Other)
  Sender: FDA-Public Use
  Company Number: None

PATIENT

DRUGS (2)
  1. FENTANYL [Suspect]
     Indication: ADENOMYOSIS
     Dosage: 75MCG TD
     Route: 062
     Dates: start: 20080806
  2. FENTANYL [Suspect]
     Indication: ENDOMETRIOSIS
     Dosage: 75MCG TD
     Route: 062
     Dates: start: 20080806

REACTIONS (4)
  - AGITATION [None]
  - DIARRHOEA [None]
  - DRUG WITHDRAWAL SYNDROME [None]
  - PAIN [None]
